FAERS Safety Report 18222673 (Version 1)
Quarter: 2020Q3

REPORT INFORMATION
  Report Type: Spontaneous
  Country: GB (occurrence: GB)
  Receive Date: 20200902
  Receipt Date: 20200902
  Transmission Date: 20201103
  Serious: Yes (Other)
  Sender: FDA-Public Use
  Company Number: GB-ROCHE-2670155

PATIENT
  Age: 87 Year
  Sex: Male

DRUGS (1)
  1. LUCENTIS [Suspect]
     Active Substance: RANIBIZUMAB
     Indication: AGE-RELATED MACULAR DEGENERATION
     Route: 031
     Dates: start: 20120831, end: 20200805

REACTIONS (4)
  - Injection site extravasation [Unknown]
  - Endophthalmitis [Unknown]
  - Hypotony of eye [Unknown]
  - Eye pain [Unknown]

NARRATIVE: CASE EVENT DATE: 20200806
